FAERS Safety Report 8539849-2 (Version None)
Quarter: 2012Q3

REPORT INFORMATION
  Report Type: 
  Country: None (occurrence: None)
  Receive Date: 20120726
  Receipt Date: 20120718
  Transmission Date: 20120928
  Serious: Yes (Hospitalization)
  Sender: FDA-Public Use
  Company Number: FR-ASTRAZENECA-2012SE30968

PATIENT
  Age: 32105 Day
  Sex: Female

DRUGS (7)
  1. LEVOTHYROXINE SODIUM [Suspect]
     Indication: HYPOTHYROIDISM
     Route: 048
  2. NEXIUM [Suspect]
     Route: 048
  3. ESIDRIX [Suspect]
     Indication: CARDIAC FAILURE
     Route: 048
  4. LASIX [Suspect]
     Indication: CARDIAC FAILURE
     Route: 048
  5. DIGOXIN [Suspect]
     Indication: ATRIAL FIBRILLATION
     Route: 048
     Dates: end: 20120417
  6. SINTROM [Suspect]
     Indication: ATRIAL FIBRILLATION
     Dosage: 0.25 DF 3 DAYS OUT OF 4
     Route: 048
  7. LYRICA [Suspect]
     Route: 048

REACTIONS (3)
  - BRADYCARDIA [None]
  - DECREASED APPETITE [None]
  - CEREBRAL HYPOPERFUSION [None]
